FAERS Safety Report 7766781-4 (Version None)
Quarter: 2011Q3

REPORT INFORMATION
  Report Type: 
  Country: None (occurrence: None)
  Receive Date: 20110922
  Receipt Date: 20110718
  Transmission Date: 20111222
  Serious: No
  Sender: FDA-Public Use
  Company Number: US-ASTRAZENECA-2011SE43069

PATIENT
  Age: 49 Year
  Sex: Female
  Weight: 155.6 kg

DRUGS (8)
  1. METHACHOLINE CHLORIDE [Concomitant]
  2. DIAZEPAM [Concomitant]
  3. ATENOLOL [Concomitant]
     Indication: CARDIAC DISORDER
     Route: 048
  4. LANITADINE [Concomitant]
  5. WATER PILL [Concomitant]
     Indication: FLUID RETENTION
  6. THYROID MEDICATION [Concomitant]
  7. SEROQUEL XR [Suspect]
     Route: 048
  8. METFORMIN HCL [Concomitant]
     Indication: DIABETES MELLITUS

REACTIONS (3)
  - ABDOMINAL PAIN UPPER [None]
  - VOMITING [None]
  - SLEEP DISORDER [None]
